FAERS Safety Report 7924626-3 (Version None)
Quarter: 2011Q4

REPORT INFORMATION
  Report Type: 
  Country: None (occurrence: None)
  Receive Date: 20111117
  Receipt Date: 20110324
  Transmission Date: 20120403
  Serious: No
  Sender: FDA-Public Use
  Company Number: US-AMGEN-USASP2011015963

PATIENT
  Age: 82 Year
  Sex: Female

DRUGS (1)
  1. ENBREL [Suspect]
     Indication: PSORIASIS
     Dosage: 50 MG, QWK
     Dates: start: 20100701

REACTIONS (6)
  - HYPOACUSIS [None]
  - DRUG INEFFECTIVE [None]
  - CONFUSIONAL STATE [None]
  - HOT FLUSH [None]
  - PRURITUS [None]
  - OVERDOSE [None]
